FAERS Safety Report 8840236 (Version 1)
Quarter: 2012Q4

REPORT INFORMATION
  Report Type: 
  Country: US (occurrence: US)
  Receive Date: 20121015
  Receipt Date: 20121015
  Transmission Date: 20130627
  Serious: Yes (Other)
  Sender: FDA-Public Use
  Company Number: US-GLAXOSMITHKLINE-A0776262A

PATIENT
  Age: 37 Year
  Sex: Female

DRUGS (1)
  1. ROSIGLITAZONE MALEATE [Suspect]
     Indication: DIABETES MELLITUS
     Dosage: 8MG Twice per day
     Route: 048
     Dates: start: 2000, end: 20070422

REACTIONS (4)
  - Infarction [Not Recovered/Not Resolved]
  - Ventricular extrasystoles [Unknown]
  - Weight increased [Unknown]
  - Cardiac disorder [Unknown]
